FAERS Safety Report 17900383 (Version 3)
Quarter: 2020Q3

REPORT INFORMATION
  Report Type: Spontaneous
  Country: US (occurrence: US)
  Receive Date: 20200616
  Receipt Date: 20200821
  Transmission Date: 20201103
  Serious: Yes (Other)
  Sender: FDA-Public Use
  Company Number: US-BAYER-2020-107951

PATIENT
  Age: 18 Year
  Sex: Female
  Weight: 55.33 kg

DRUGS (1)
  1. MIRENA [Suspect]
     Active Substance: LEVONORGESTREL
     Indication: CONTRACEPTION
     Dosage: 20 ?G PER DAY CONTINUOUSLY
     Route: 015
     Dates: start: 20151104, end: 20200605

REACTIONS (5)
  - Embedded device [Recovered/Resolved]
  - Gynaecological chlamydia infection [None]
  - Complication of device removal [None]
  - Device issue [None]
  - Device breakage [None]

NARRATIVE: CASE EVENT DATE: 20160222
